FAERS Safety Report 20347413 (Version 1)
Quarter: 2022Q1

REPORT INFORMATION
  Report Type: Spontaneous
  Country: US (occurrence: None)
  Receive Date: 20220118
  Receipt Date: 20220118
  Transmission Date: 20220423
  Serious: No
  Sender: FDA-Public Use
  Company Number: None

PATIENT
  Age: 32 Year
  Sex: Female
  Weight: 63.96 kg

DRUGS (1)
  1. ENBREL [Suspect]
     Active Substance: ETANERCEPT
     Indication: Rheumatoid arthritis
     Dosage: FREQUENCY : 3 TIMES A WEEK;?
     Route: 058
     Dates: start: 202104

REACTIONS (3)
  - SARS-CoV-2 test positive [None]
  - Dyspnoea [None]
  - Therapy interrupted [None]
